FAERS Safety Report 9305236 (Version 1)
Quarter: 2013Q2

REPORT INFORMATION
  Report Type: Spontaneous
  Country: US (occurrence: None)
  Receive Date: 20130522
  Receipt Date: 20130522
  Transmission Date: 20140414
  Serious: Yes (Death)
  Sender: FDA-Public Use
  Company Number: None

PATIENT
  Age: 58 Year
  Sex: Male
  Weight: 87.5 kg

DRUGS (1)
  1. NAB-PACLITAXEL [Suspect]
     Indication: PLASMA CELL MYELOMA
     Route: 042
     Dates: start: 20130424

REACTIONS (2)
  - Sepsis [None]
  - Gastrointestinal necrosis [None]
